FAERS Safety Report 24323172 (Version 1)
Quarter: 2024Q3

REPORT INFORMATION
  Report Type: Report from Study
  Country: AT (occurrence: AT)
  Receive Date: 20240916
  Receipt Date: 20240916
  Transmission Date: 20241017
  Serious: Yes (Hospitalization)
  Sender: ROCHE
  Company Number: AT-ROCHE-10000078377

PATIENT
  Sex: Female
  Weight: 3.46 kg

DRUGS (1)
  1. OCREVUS [Suspect]
     Active Substance: OCRELIZUMAB
     Indication: Product used for unknown indication
     Route: 063

REACTIONS (2)
  - Pneumonia [Recovered/Resolved]
  - Foetal exposure during pregnancy [Unknown]
